FAERS Safety Report 4759191-5 (Version None)
Quarter: 2005Q3

REPORT INFORMATION
  Report Type: 
  Country: None (occurrence: None)
  Receive Date: 20050901
  Receipt Date: 20050826
  Transmission Date: 20060218
  Serious: Yes (Other)
  Sender: FDA-Public Use
  Company Number: PHBS2005IE12600

PATIENT
  Sex: 0

DRUGS (1)
  1. ZOMETA [Suspect]
     Route: 042

REACTIONS (3)
  - ASEPTIC NECROSIS BONE [None]
  - POST PROCEDURAL COMPLICATION [None]
  - TOOTH EXTRACTION [None]
